FAERS Safety Report 11342500 (Version 1)
Quarter: 2015Q3

REPORT INFORMATION
  Report Type: Report from Study
  Country: US (occurrence: US)
  Receive Date: 20150805
  Receipt Date: 20150805
  Transmission Date: 20151125
  Serious: Yes (Other)
  Sender: FDA-Public Use
  Company Number: US-MYLANLABS-2015M1025886

PATIENT

DRUGS (4)
  1. SODIUM CHLORIDE. [Concomitant]
     Active Substance: SODIUM CHLORIDE
     Indication: PRODUCT USED FOR UNKNOWN INDICATION
     Dosage: UNK
     Route: 042
  2. PROBENECID. [Concomitant]
     Active Substance: PROBENECID
     Indication: PREMEDICATION
     Dosage: 25 MG/KG
     Route: 048
  3. PROBENECID. [Concomitant]
     Active Substance: PROBENECID
     Dosage: 10 MG/KG
     Route: 048
  4. CIDOFOVIR. [Suspect]
     Active Substance: CIDOFOVIR
     Indication: GASTROENTERITIS ADENOVIRUS
     Dosage: 5 MG/KG OF BODY WEIGHT AS 1 HOUR INFUSION
     Route: 041

REACTIONS (2)
  - Chronic kidney disease [Unknown]
  - Acute kidney injury [Unknown]
